FAERS Safety Report 6490041-5 (Version None)
Quarter: 2009Q4

REPORT INFORMATION
  Report Type: 
  Country: None (occurrence: None)
  Receive Date: 20091211
  Receipt Date: 20091202
  Transmission Date: 20100525
  Serious: Yes (Hospitalization)
  Sender: FDA-Public Use
  Company Number: HU-ROCHE-668334

PATIENT
  Sex: Female
  Weight: 79 kg

DRUGS (2)
  1. RIBAVIRIN [Suspect]
     Indication: ANTIVIRAL TREATMENT
     Dosage: DISCONTINUED FOR A WEEK.
     Route: 048
     Dates: start: 20090619, end: 20090917
  2. RIBAVIRIN [Suspect]
     Dosage: RESTARTED ON AN UNKNOWN DATE. LAST DOSE PRIOR TO THE SAE: 08 NOVEMBER 2009.
     Route: 048

REACTIONS (1)
  - ASTHMA [None]
